FAERS Safety Report 9245468 (Version 1)
Quarter: 2013Q2

REPORT INFORMATION
  Report Type: Spontaneous
  Country: US (occurrence: US)
  Receive Date: 20130422
  Receipt Date: 20130422
  Transmission Date: 20140414
  Serious: Yes (Other)
  Sender: FDA-Public Use
  Company Number: US-ASTRAZENECA-2013SE26093

PATIENT
  Age: 66 Year
  Sex: Female
  Weight: 49.9 kg

DRUGS (5)
  1. NEXIUM [Suspect]
     Indication: GASTROOESOPHAGEAL REFLUX DISEASE
     Route: 048
     Dates: start: 2003
  2. CRESTOR [Suspect]
     Indication: BLOOD CHOLESTEROL INCREASED
     Route: 048
  3. CRESTOR [Suspect]
     Indication: BLOOD CHOLESTEROL INCREASED
     Route: 048
     Dates: start: 2006
  4. BABY ASPIRIN [Concomitant]
  5. MULTIVITAMIN [Concomitant]

REACTIONS (8)
  - Haematuria [Recovered/Resolved]
  - Proteinuria [Recovered/Resolved]
  - Urine analysis abnormal [Unknown]
  - Vision blurred [Unknown]
  - Dysuria [Unknown]
  - Visual impairment [Unknown]
  - Headache [Unknown]
  - Intentional drug misuse [Unknown]
